FAERS Safety Report 19778765 (Version 1)
Quarter: 2021Q3

REPORT INFORMATION
  Report Type: Spontaneous
  Country: US (occurrence: US)
  Receive Date: 20210902
  Receipt Date: 20210902
  Transmission Date: 20211014
  Serious: Yes (Hospitalization)
  Sender: FDA-Public Use
  Company Number: None

PATIENT
  Sex: Female

DRUGS (8)
  1. BUDES/FORMOT AER [Concomitant]
  2. TRAZODONE [Concomitant]
     Active Substance: TRAZODONE HYDROCHLORIDE
  3. TRIAMT/HCTZ [Concomitant]
     Active Substance: HYDROCHLOROTHIAZIDE\TRIAMTERENE
  4. ENBREL [Suspect]
     Active Substance: ETANERCEPT
     Indication: RHEUMATOID ARTHRITIS
     Dosage: ?          OTHER FREQUENCY:QWEEK;?
     Route: 058
     Dates: start: 20191204
  5. FEROSUL [Concomitant]
     Active Substance: FERROUS SULFATE
  6. PREGABALIN. [Concomitant]
     Active Substance: PREGABALIN
  7. MONTELUKAST [Concomitant]
     Active Substance: MONTELUKAST SODIUM
  8. OMEPRAZOLE. [Concomitant]
     Active Substance: OMEPRAZOLE

REACTIONS (2)
  - Surgery [None]
  - Therapy interrupted [None]
